FAERS Safety Report 7279130-5 (Version None)
Quarter: 2011Q1

REPORT INFORMATION
  Report Type: 
  Country: None (occurrence: None)
  Receive Date: 20110207
  Receipt Date: 20110202
  Transmission Date: 20110831
  Serious: Yes (Life-Threatening, Hospitalization)
  Sender: FDA-Public Use
  Company Number: GB-MEDIMMUNE-MEDI-0012206

PATIENT
  Sex: Male
  Weight: 5.75 kg

DRUGS (6)
  1. SALBUTAMOL NEBS [Concomitant]
  2. FUROSEMIDE [Concomitant]
  3. DOMPERIDONE [Concomitant]
  4. SYNAGIS [Suspect]
     Dates: start: 20101011, end: 20101206
  5. SYNAGIS [Suspect]
     Dates: start: 20110104, end: 20110104
  6. AMILORIDE HYDROCHLORIDE [Concomitant]

REACTIONS (6)
  - GENERAL PHYSICAL HEALTH DETERIORATION [None]
  - BRADYCARDIA [None]
  - INCREASED UPPER AIRWAY SECRETION [None]
  - ILL-DEFINED DISORDER [None]
  - DYSPNOEA [None]
  - RESPIRATORY SYNCYTIAL VIRUS TEST POSITIVE [None]
